FAERS Safety Report 6204691-4 (Version None)
Quarter: 2009Q2

REPORT INFORMATION
  Report Type: 
  Country: None (occurrence: None)
  Receive Date: 20090527
  Receipt Date: 20090518
  Transmission Date: 20091009
  Serious: Yes (Other)
  Sender: FDA-Public Use
  Company Number: PHHY2009JP20224

PATIENT
  Age: 29 Year
  Sex: Male
  Weight: 87.6 kg

DRUGS (4)
  1. CYCLOSPORINE [Suspect]
     Indication: BONE MARROW TRANSPLANT
     Dosage: 160 MG/DAY
  2. CYCLOSPORINE [Suspect]
     Dosage: 200 MG/DAY
  3. CYCLOPHOSPHAMIDE [Concomitant]
     Dosage: 4.5 G X 2 DAYS
  4. RADIATION [Concomitant]
     Dosage: 4GY X 3 DAYS

REACTIONS (6)
  - GLOMERULONEPHRITIS MEMBRANOUS [None]
  - HAEMATURIA [None]
  - NEPHROPATHY TOXIC [None]
  - PANCYTOPENIA [None]
  - PROTEINURIA [None]
  - RENAL VESSEL DISORDER [None]
